FAERS Safety Report 7674080-4 (Version None)
Quarter: 2011Q3

REPORT INFORMATION
  Report Type: 
  Country: None (occurrence: None)
  Receive Date: 20110810
  Receipt Date: 20110805
  Transmission Date: 20111222
  Serious: Yes (Death)
  Sender: FDA-Public Use
  Company Number: CN-PFIZER INC-2011175213

PATIENT
  Age: 65 Year
  Sex: Male

DRUGS (2)
  1. CEFOBID [Suspect]
     Indication: BRONCHITIS
     Dosage: 2.0 NO DOSE UNITS PROVIDED
     Route: 042
  2. CEFAZOLIN [Concomitant]
     Indication: BRONCHITIS
     Dosage: 3.0 (NO DOSE UNITS PROVIDED), 20 ML TWICE DAILY
     Route: 042

REACTIONS (1)
  - ANAPHYLACTIC SHOCK [None]
